FAERS Safety Report 8837109 (Version 1)
Quarter: 2012Q4

REPORT INFORMATION
  Report Type: Spontaneous
  Country: US (occurrence: None)
  Receive Date: 20121011
  Receipt Date: 20121011
  Transmission Date: 20130627
  Serious: Yes (Other)
  Sender: FDA-Public Use
  Company Number: None

PATIENT
  Age: 58 Year
  Sex: Female
  Weight: 68.2 kg

DRUGS (1)
  1. HYDROCO/ACETAMINOPHEN [Suspect]
     Indication: TOOTH PAIN
     Dosage: 10-650mg 1 orally
     Route: 048
     Dates: start: 20121008, end: 20121008

REACTIONS (5)
  - Nausea [None]
  - Vomiting [None]
  - Urine output increased [None]
  - Inadequate analgesia [None]
  - Malaise [None]
